FAERS Safety Report 11487913 (Version 2)
Quarter: 2015Q4

REPORT INFORMATION
  Report Type: Spontaneous
  Country: JP (occurrence: JP)
  Receive Date: 20150909
  Receipt Date: 20151130
  Transmission Date: 20160304
  Serious: Yes (Other)
  Sender: FDA-Public Use
  Company Number: JP-PFIZER INC-2015298625

PATIENT
  Age: 89 Year
  Sex: Male

DRUGS (3)
  1. CELECOX [Suspect]
     Active Substance: CELECOXIB
     Indication: PERIARTHRITIS
     Dosage: 200 MG, DAILY
     Route: 048
     Dates: start: 20150709
  2. BESOFTEN [Concomitant]
     Active Substance: SODIUM ALGINATE
     Dosage: UNK
     Route: 061
  3. PLETAAL [Suspect]
     Active Substance: CILOSTAZOL
     Dosage: UNK
     Route: 048

REACTIONS (2)
  - Haemorrhage subcutaneous [Unknown]
  - Blister [Unknown]
